FAERS Safety Report 25369007 (Version 1)
Quarter: 2025Q2

REPORT INFORMATION
  Report Type: Spontaneous
  Country: CN (occurrence: CN)
  Receive Date: 20250528
  Receipt Date: 20250528
  Transmission Date: 20250716
  Serious: Yes (Other)
  Sender: MERCK SHARP & DOHME LLC
  Company Number: CN-009507513-2288927

PATIENT
  Age: 8 Year
  Sex: Male
  Weight: 24.5 kg

DRUGS (9)
  1. POSACONAZOLE [Interacting]
     Active Substance: POSACONAZOLE
     Indication: Pneumonia fungal
     Route: 048
     Dates: start: 20230628
  2. VINCRISTINE [Interacting]
     Active Substance: VINCRISTINE
     Indication: Precursor T-lymphoblastic lymphoma/leukaemia stage II
     Dosage: 1.5 MG/(M2?D), EIGHTH COURSE FIRST DOSE
     Dates: start: 20230907, end: 20230907
  3. VINCRISTINE [Interacting]
     Active Substance: VINCRISTINE
     Indication: Precursor T-lymphoblastic lymphoma/leukaemia stage II
     Dosage: 1.5 MG/(M2?D), EIGHTH COURSE
     Dates: start: 20230914, end: 20230914
  4. VINCRISTINE [Interacting]
     Active Substance: VINCRISTINE
     Indication: Precursor T-lymphoblastic lymphoma/leukaemia stage II
     Dosage: 1.5 MG/(M2?D), EIGHTH COURSE THIRD DOSE
     Dates: start: 20230921, end: 20230921
  5. VINCRISTINE [Interacting]
     Active Substance: VINCRISTINE
     Indication: Precursor T-lymphoblastic lymphoma/leukaemia stage II
     Dosage: 1.5 MG/(M2?D)
     Dates: start: 20230327, end: 20230327
  6. VINCRISTINE [Interacting]
     Active Substance: VINCRISTINE
     Indication: Precursor T-lymphoblastic lymphoma/leukaemia stage II
     Dosage: 1.5 MG/(M2?D) ON D8
     Dates: start: 20230403, end: 20230403
  7. VINCRISTINE [Interacting]
     Active Substance: VINCRISTINE
     Indication: Precursor T-lymphoblastic lymphoma/leukaemia stage II
     Dosage: 1.5 MG/(M2?D) ON D15, THIRD DOSE
     Dates: start: 20230410, end: 20230410
  8. VINCRISTINE [Interacting]
     Active Substance: VINCRISTINE
     Indication: Precursor T-lymphoblastic lymphoma/leukaemia stage II
     Dosage: 1.5 MG/(M2?D) ON D21
     Dates: start: 20230416, end: 20230416
  9. VORICONAZOLE [Concomitant]
     Active Substance: VORICONAZOLE
     Indication: Pneumonia fungal
     Route: 042
     Dates: start: 20230618, end: 20230627

REACTIONS (5)
  - Neuropathy peripheral [Recovering/Resolving]
  - Product use in unapproved indication [Unknown]
  - Drug interaction [Unknown]
  - Chemotherapeutic drug level increased [Unknown]
  - Autonomic neuropathy [Recovering/Resolving]

NARRATIVE: CASE EVENT DATE: 20230628
